FAERS Safety Report 11801084 (Version 1)
Quarter: 2015Q4

REPORT INFORMATION
  Report Type: Other
  Country: JP (occurrence: JP)
  Receive Date: 20151204
  Receipt Date: 20151204
  Transmission Date: 20160305
  Serious: Yes (Other)
  Sender: FDA-Public Use
  Company Number: JP-LUPIN PHARMACEUTICALS INC.-2015-03888

PATIENT
  Age: 77 Year
  Sex: Female

DRUGS (2)
  1. QUETIAPINE 25MG TABLET ^AMEL^ [Suspect]
     Active Substance: QUETIAPINE
     Indication: PRODUCT USED FOR UNKNOWN INDICATION
     Route: 065
     Dates: start: 201402, end: 201406
  2. CALFINA 0.25MCG TABLET [Suspect]
     Active Substance: ALFACALCIDOL
     Indication: PRODUCT USED FOR UNKNOWN INDICATION
     Route: 065
     Dates: start: 201402, end: 201406

REACTIONS (1)
  - Drug-induced liver injury [Unknown]
